FAERS Safety Report 18497559 (Version 1)
Quarter: 2020Q4

REPORT INFORMATION
  Report Type: Spontaneous
  Country: CN (occurrence: CN)
  Receive Date: 20201112
  Receipt Date: 20201112
  Transmission Date: 20210114
  Serious: Yes (Other)
  Sender: FDA-Public Use
  Company Number: CN-009507513-2011CHN005038

PATIENT
  Age: 67 Year
  Sex: Female
  Weight: 70 kg

DRUGS (5)
  1. CELECOXIB. [Concomitant]
     Active Substance: CELECOXIB
     Indication: ANALGESIC THERAPY
  2. ETALPHA [Concomitant]
     Active Substance: ALFACALCIDOL
     Indication: PAIN IN EXTREMITY
     Dosage: 50 MICROGRAM, BID
     Route: 048
     Dates: start: 20200724, end: 20200811
  3. CELECOXIB. [Concomitant]
     Active Substance: CELECOXIB
     Indication: PAIN IN EXTREMITY
     Dosage: 200 MILLIGRAM, BID
     Route: 048
     Dates: start: 20200724, end: 20200811
  4. ETALPHA [Concomitant]
     Active Substance: ALFACALCIDOL
     Indication: BLOOD CALCIUM ABNORMAL
  5. DIPROSPAN [Suspect]
     Active Substance: BETAMETHASONE DIPROPIONATE\BETAMETHASONE SODIUM PHOSPHATE
     Indication: PAIN IN EXTREMITY
     Dosage: 7 MILLIGRAM, QD
     Route: 030
     Dates: start: 20200727, end: 20200727

REACTIONS (2)
  - Blood pressure increased [Recovered/Resolved]
  - Blood glucose increased [Recovered/Resolved]

NARRATIVE: CASE EVENT DATE: 20200727
